FAERS Safety Report 21269463 (Version 1)
Quarter: 2022Q3

REPORT INFORMATION
  Report Type: Report from Study
  Country: US (occurrence: US)
  Receive Date: 20220830
  Receipt Date: 20220830
  Transmission Date: 20221026
  Serious: Yes (Other)
  Sender: FDA-Public Use
  Company Number: US-KOREA IPSEN Pharma-2022-24487

PATIENT
  Age: 27 Year
  Sex: Female

DRUGS (1)
  1. SOMATULINE DEPOT [Suspect]
     Active Substance: LANREOTIDE ACETATE
     Indication: Carcinoid syndrome
     Dosage: STRENGTH: 120MG/0.5 ML EVERY 28 DAYS
     Route: 058
     Dates: start: 202105

REACTIONS (5)
  - Neoplasm progression [Recovering/Resolving]
  - Injection site mass [Recovering/Resolving]
  - Injection site haemorrhage [Recovered/Resolved]
  - Injection site pain [Recovered/Resolved]
  - Depressed mood [Recovering/Resolving]
